FAERS Safety Report 7705987-7 (Version None)
Quarter: 2011Q3

REPORT INFORMATION
  Report Type: 
  Country: None (occurrence: None)
  Receive Date: 20110824
  Receipt Date: 20101208
  Transmission Date: 20111222
  Serious: No
  Sender: FDA-Public Use
  Company Number: US-BAYER-2011-000154

PATIENT
  Age: 25 Year
  Sex: Female

DRUGS (1)
  1. MIRENA [Suspect]
     Indication: CONTRACEPTION
     Dosage: UNK
     Route: 015
     Dates: start: 20091201

REACTIONS (4)
  - DEVICE DISLOCATION [None]
  - HYPOMENORRHOEA [None]
  - MENOMETRORRHAGIA [None]
  - ABDOMINAL PAIN [None]
